FAERS Safety Report 12912925 (Version 1)
Quarter: 2016Q4

REPORT INFORMATION
  Report Type: Spontaneous
  Country: ES (occurrence: ES)
  Receive Date: 20161104
  Receipt Date: 20161104
  Transmission Date: 20170207
  Serious: Yes (Disabling)
  Sender: FDA-Public Use
  Company Number: ES-SA-2016SA197931

PATIENT
  Age: 21 Year
  Sex: Female

DRUGS (3)
  1. ETHAMBUTOL [Suspect]
     Active Substance: ETHAMBUTOL HYDROCHLORIDE
     Indication: DISSEMINATED TUBERCULOSIS
     Route: 065
  2. RIFAMPICIN [Suspect]
     Active Substance: RIFAMPIN
     Indication: DISSEMINATED TUBERCULOSIS
     Route: 065
  3. STREPTOMYCIN SULFATE. [Suspect]
     Active Substance: STREPTOMYCIN SULFATE
     Indication: DISSEMINATED TUBERCULOSIS
     Route: 065

REACTIONS (5)
  - Gait disturbance [Recovered/Resolved]
  - Hyporeflexia [Recovered/Resolved]
  - Visual impairment [Recovered/Resolved]
  - Vestibular disorder [Recovered/Resolved]
  - Ototoxicity [Recovered/Resolved]
